FAERS Safety Report 13115718 (Version 2)
Quarter: 2017Q1

REPORT INFORMATION
  Report Type: Report from Study
  Country: None (occurrence: US)
  Receive Date: 20170114
  Receipt Date: 20170303
  Transmission Date: 20170428
  Serious: Yes (Hospitalization)
  Sender: FDA-Public Use
  Company Number: US-ABBVIE-17P-163-1840640-00

PATIENT
  Sex: Male

DRUGS (1)
  1. VIEKIRA XR [Suspect]
     Active Substance: DASABUVIR SODIUM MONOHYDRATE\OMBITASVIR HEMINONAHYDRATE\PARITAPREVIR DIHYDRATE\RITONAVIR
     Indication: HEPATITIS C
     Route: 048
     Dates: start: 20161228

REACTIONS (2)
  - Headache [Unknown]
  - Blood test abnormal [Unknown]
